FAERS Safety Report 9164540 (Version 22)
Quarter: 2016Q3

REPORT INFORMATION
  Report Type: Report from Study
  Country: CA (occurrence: CA)
  Receive Date: 20130315
  Receipt Date: 20160704
  Transmission Date: 20161109
  Serious: Yes (Hospitalization, Other)
  Sender: FDA-Public Use
  Company Number: PHHY2013CA016965

PATIENT
  Age: 53 Year
  Sex: Female

DRUGS (22)
  1. TASIGNA [Suspect]
     Active Substance: NILOTINIB
     Dosage: 150 MG, QD
     Route: 048
  2. TASIGNA [Suspect]
     Active Substance: NILOTINIB
     Dosage: 300 MG, QD
     Route: 048
     Dates: end: 20130415
  3. VITAMIN B [Concomitant]
     Active Substance: VITAMIN B
     Indication: PRODUCT USED FOR UNKNOWN INDICATION
     Route: 065
  4. TASIGNA [Suspect]
     Active Substance: NILOTINIB
     Dosage: 150 MG QAM (EVERY DAY BEFORE NOON) AND 200 MG QHS (EVERY NIGHT AT BEDTIME)
     Route: 048
     Dates: start: 20130216
  5. TASIGNA [Suspect]
     Active Substance: NILOTINIB
     Dosage: 300 MG, QD
     Route: 048
     Dates: start: 20141128
  6. TASIGNA [Suspect]
     Active Substance: NILOTINIB
     Dosage: 150 MG, BID
     Route: 048
     Dates: start: 20130226
  7. TASIGNA [Suspect]
     Active Substance: NILOTINIB
     Dosage: 350 MG/DAY (200 MG MORNING AND 150 MG EVENING)
     Route: 048
     Dates: start: 20130503, end: 20130827
  8. TASIGNA [Suspect]
     Active Substance: NILOTINIB
     Dosage: 300 MG, BID
     Route: 048
     Dates: start: 20130222
  9. TASIGNA [Suspect]
     Active Substance: NILOTINIB
     Dosage: 300 MG, QHS ((EVERY NIGHT AT BEDTIME)
     Route: 048
  10. TASIGNA [Suspect]
     Active Substance: NILOTINIB
     Dosage: 350 MG, QD (150 MG QAM AND 200 MG QPM)
     Route: 048
  11. SYNTHROID [Concomitant]
     Active Substance: LEVOTHYROXINE SODIUM
     Dosage: 0.88 UG, UNK
  12. TASIGNA [Suspect]
     Active Substance: NILOTINIB
     Dosage: 300 MG, (IN THE EVENING)
     Route: 048
     Dates: start: 20130217
  13. TASIGNA [Suspect]
     Active Substance: NILOTINIB
     Indication: CHRONIC MYELOID LEUKAEMIA
     Dosage: 300 MG, QD
     Route: 048
  14. TASIGNA [Suspect]
     Active Substance: NILOTINIB
     Dosage: 150 MG IN THE MORNING
     Route: 048
     Dates: start: 20130218
  15. TASIGNA [Suspect]
     Active Substance: NILOTINIB
     Dosage: 350 MG, QD
     Route: 048
     Dates: start: 20141127
  16. TASIGNA [Suspect]
     Active Substance: NILOTINIB
     Dosage: 400 MG, QD
     Route: 048
     Dates: start: 20141205
  17. TASIGNA [Suspect]
     Active Substance: NILOTINIB
     Dosage: 150 MG, QD
     Route: 048
  18. TASIGNA [Suspect]
     Active Substance: NILOTINIB
     Dosage: 200 MG, BID
     Route: 048
     Dates: start: 20130921
  19. TASIGNA [Suspect]
     Active Substance: NILOTINIB
     Dosage: 150MG QAM AND 200MG QHS
     Route: 048
     Dates: start: 20141129
  20. TASIGNA [Suspect]
     Active Substance: NILOTINIB
     Dosage: 200MG IN MORNING AND 150MG AT NIGHT
     Route: 048
     Dates: start: 20141215
  21. TASIGNA [Suspect]
     Active Substance: NILOTINIB
     Dosage: 200 MG, BID
     Route: 048
  22. SYNTHROID [Concomitant]
     Active Substance: LEVOTHYROXINE SODIUM
     Indication: HYPOTHYROIDISM
     Dosage: 0.75 UG, QD
     Route: 065

REACTIONS (66)
  - Swelling face [Unknown]
  - Muscle tightness [Unknown]
  - Diarrhoea [Unknown]
  - Acne [Unknown]
  - Alopecia [Unknown]
  - Photosensitivity reaction [Unknown]
  - Depression [Unknown]
  - Pain in extremity [Recovered/Resolved]
  - Drug withdrawal syndrome [Recovering/Resolving]
  - Tooth disorder [Unknown]
  - Bone loss [Unknown]
  - Sciatica [Unknown]
  - Feeling abnormal [Recovering/Resolving]
  - Rash [Recovering/Resolving]
  - Anaemia [Unknown]
  - Dry skin [Unknown]
  - Dyspnoea [Unknown]
  - Hypoaesthesia [Unknown]
  - Sunburn [Unknown]
  - Gingival pain [Unknown]
  - Ligament sprain [Unknown]
  - Pancreatic enzymes increased [Recovered/Resolved]
  - Dry eye [Unknown]
  - Gamma-glutamyltransferase increased [Unknown]
  - Constipation [Unknown]
  - Convalescent [Unknown]
  - Crying [Unknown]
  - Gingival bleeding [Unknown]
  - Joint stiffness [Unknown]
  - Toothache [Unknown]
  - Disorientation [Recovered/Resolved]
  - Confusional state [Recovered/Resolved]
  - Disturbance in attention [Recovered/Resolved]
  - Anxiety [Recovered/Resolved]
  - White blood cell count increased [Unknown]
  - Intervertebral disc protrusion [Unknown]
  - Angioedema [Unknown]
  - Lid sulcus deepened [Unknown]
  - Peripheral nerve lesion [Unknown]
  - Peripheral coldness [Unknown]
  - Contusion [Unknown]
  - Heart rate increased [Unknown]
  - Headache [Unknown]
  - Decreased appetite [Recovered/Resolved]
  - Eye swelling [Recovering/Resolving]
  - Asthenia [Unknown]
  - Myalgia [Recovered/Resolved]
  - Musculoskeletal pain [Unknown]
  - Hypothyroidism [Recovered/Resolved]
  - Hair disorder [Unknown]
  - Sedation [Unknown]
  - Hepatic enzyme increased [Recovered/Resolved]
  - Muscle spasms [Unknown]
  - Back pain [Unknown]
  - Flatulence [Unknown]
  - Abdominal distension [Unknown]
  - Liver disorder [Unknown]
  - Hypopnoea [Unknown]
  - Skin disorder [Unknown]
  - Osteopenia [Unknown]
  - Gait disturbance [Unknown]
  - Rash macular [Unknown]
  - Therapeutic response decreased [Unknown]
  - Emotional disorder [Unknown]
  - Memory impairment [Recovered/Resolved]
  - Pruritus [Unknown]

NARRATIVE: CASE EVENT DATE: 20130218
